FAERS Safety Report 7025538-2 (Version None)
Quarter: 2010Q4

REPORT INFORMATION
  Report Type: 
  Country: None (occurrence: None)
  Receive Date: 20101003
  Receipt Date: 20100922
  Transmission Date: 20110411
  Serious: Yes (Hospitalization)
  Sender: FDA-Public Use
  Company Number: PHHY2009DE12518

PATIENT
  Age: 87 Year
  Sex: Female
  Weight: 84 kg

DRUGS (14)
  1. METOPROLOL TARTRATE [Suspect]
     Indication: HYPERTENSION
     Dosage: 95 MG, BID
     Route: 048
     Dates: start: 20051201
  2. METOPROLOL TARTRATE [Suspect]
     Dosage: 95 MG, ONCE/SINGLE
     Dates: start: 20081012
  3. AMLODIPIN ^ORIFARM^ [Suspect]
     Indication: HYPERTENSION
     Dosage: 2.5 MG, ONCE/SINGLE
     Route: 048
     Dates: start: 20080801
  4. HYDROCHLOROTHIAZIDE [Suspect]
     Indication: HYPERTENSION
     Dosage: 25 MG, ONCE/SINGLE
     Route: 048
     Dates: start: 20051201
  5. RAMIPRIL [Suspect]
     Indication: HYPERTENSION
     Dosage: 5 MG, ONCE/SINGLE
     Route: 048
     Dates: start: 20051201
  6. ALLOPURINOL [Concomitant]
     Indication: HYPERURICAEMIA
     Dosage: 100 MG, ONCE/SINGLE
     Route: 048
  7. CIPRALEX [Concomitant]
     Indication: DEPRESSION
     Dosage: 10 MG, ONCE/SINGLE
     Route: 048
  8. ISCOVER [Concomitant]
     Indication: AORTIC STENOSIS
     Dosage: 75 MG, ONCE/SINGLE
     Route: 048
     Dates: start: 20051201
  9. LEVOTHYROXINE SODIUM [Concomitant]
     Indication: HYPOTHYROIDISM
     Dosage: 75 MG, ONCE/SINGLE
     Route: 048
  10. ESOMEPRAZOLE [Concomitant]
     Indication: PROPHYLAXIS AGAINST GASTROINTESTINAL ULCER
     Dosage: 20 MG, ONCE/SINGLE
     Route: 048
     Dates: start: 20051201
  11. SIMVASTATIN [Concomitant]
     Indication: HYPERLIPIDAEMIA
     Dosage: 40 MG, ONCE/SINGLE
     Route: 048
     Dates: start: 20051201
  12. SPASMEX [Concomitant]
     Indication: URGE INCONTINENCE
     Dosage: 2.5 MG, ONCE/SINGLE
     Route: 048
     Dates: end: 20081013
  13. VESICARE [Concomitant]
     Indication: URGE INCONTINENCE
     Dosage: 10 MG, BID
     Route: 048
     Dates: end: 20081013
  14. NEXIUM [Concomitant]
     Indication: PROPHYLAXIS AGAINST GASTROINTESTINAL ULCER
     Dosage: 20 MG DAILY
     Route: 048
     Dates: start: 20051201

REACTIONS (4)
  - HYPOTENSION [None]
  - MUSCULAR WEAKNESS [None]
  - SINUS BRADYCARDIA [None]
  - SYNCOPE [None]
